FAERS Safety Report 4364334-1 (Version None)
Quarter: 2004Q2

REPORT INFORMATION
  Report Type: 
  Country: None (occurrence: None)
  Receive Date: 20040525
  Receipt Date: 20031106
  Transmission Date: 20050107
  Serious: No
  Sender: FDA-Public Use
  Company Number: US-BRISTOL-MYERS SQUIBB COMPANY-12430450

PATIENT
  Sex: Female

DRUGS (2)
  1. CYTOXAN [Suspect]
     Indication: BREAST CANCER
     Route: 042
  2. ADRIAMYCIN PFS [Concomitant]
     Route: 042

REACTIONS (2)
  - NAUSEA [None]
  - VOMITING [None]
